FAERS Safety Report 14359973 (Version 1)
Quarter: 2018Q1

REPORT INFORMATION
  Report Type: Spontaneous
  Country: US (occurrence: US)
  Receive Date: 20180105
  Receipt Date: 20180105
  Transmission Date: 20180509
  Serious: No
  Sender: FDA-Public Use
  Company Number: -SAAVPROD-BI2016BI080205

PATIENT
  Age: 34 Year
  Sex: Female

DRUGS (3)
  1. RANITIDINE HYDROCHLORIDE. [Suspect]
     Active Substance: RANITIDINE HYDROCHLORIDE
     Indication: DYSPEPSIA
     Dosage: PRN; ADMINISTRATION CORRECT: YES; ACTION TAKEN: DRUG WITHDRAWN
     Route: 048
     Dates: start: 2013
  2. RANITIDINE HYDROCHLORIDE. [Suspect]
     Active Substance: RANITIDINE HYDROCHLORIDE
     Indication: DYSPEPSIA
     Dosage: PRN; ADMINISTRATION CORRECT: NO
     Route: 048
     Dates: start: 201610
  3. VITAMIN D NOS/ASCORBIC ACID/VITAMIN B NOS/BIOTIN/MINERALS NOS/TOCOPHEROL/RETINOL/NICOTINIC ACID [Concomitant]
     Indication: PREGNANCY
     Dates: start: 2016

REACTIONS (1)
  - Incorrect drug administration duration [Unknown]

NARRATIVE: CASE EVENT DATE: 201610
